FAERS Safety Report 18080278 (Version 1)
Quarter: 2020Q3

REPORT INFORMATION
  Report Type: Report from Study
  Country: AT (occurrence: AT)
  Receive Date: 20200728
  Receipt Date: 20200728
  Transmission Date: 20201103
  Serious: Yes (Hospitalization)
  Sender: FDA-Public Use
  Company Number: AT-AMGEN-AUTCT2020055664

PATIENT
  Age: 18 Year
  Sex: Female

DRUGS (5)
  1. CETIRIZIN [Concomitant]
     Active Substance: CETIRIZINE HYDROCHLORIDE
     Dosage: UNK, UNK
  2. CORTISON [Concomitant]
     Active Substance: CORTISONE ACETATE
     Indication: MIGRAINE
     Dosage: UNK
     Route: 065
     Dates: start: 20200328, end: 20200331
  3. PANTOPRAZOL [PANTOPRAZOLE SODIUM SESQUIHYDRATE] [Concomitant]
     Active Substance: PANTOPRAZOLE SODIUM
     Indication: MIGRAINE
     Dosage: UNK
     Route: 065
     Dates: start: 20200328, end: 20200331
  4. CETIRIZIN [Concomitant]
     Active Substance: CETIRIZINE HYDROCHLORIDE
     Indication: URTICARIA CHRONIC
     Dosage: UNK
     Route: 065
     Dates: start: 20140502, end: 20200415
  5. ERENUMAB [Suspect]
     Active Substance: ERENUMAB
     Indication: MIGRAINE
     Dosage: 140 MG, Q4W
     Route: 058
     Dates: start: 20191220

REACTIONS (1)
  - Migraine [Recovered/Resolved]

NARRATIVE: CASE EVENT DATE: 20200402
